FAERS Safety Report 5851217-0 (Version None)
Quarter: 2008Q3

REPORT INFORMATION
  Report Type: 
  Country: None (occurrence: None)
  Receive Date: 20080820
  Receipt Date: 20080813
  Transmission Date: 20090109
  Serious: Yes (Hospitalization)
  Sender: FDA-Public Use
  Company Number: US-JNJFOC-20080802684

PATIENT
  Sex: Male

DRUGS (2)
  1. DOXIL [Suspect]
     Dosage: 6TH INFUSION
     Route: 042
  2. DOXIL [Suspect]
     Indication: MULTIPLE MYELOMA
     Route: 042

REACTIONS (4)
  - HYPOAESTHESIA [None]
  - OEDEMA PERIPHERAL [None]
  - PAIN IN EXTREMITY [None]
  - SKIN DISCOLOURATION [None]
